FAERS Safety Report 17942381 (Version 1)
Quarter: 2020Q2

REPORT INFORMATION
  Report Type: Spontaneous
  Country: US (occurrence: US)
  Receive Date: 20200625
  Receipt Date: 20200625
  Transmission Date: 20200714
  Serious: Yes (Other)
  Sender: FDA-Public Use
  Company Number: None

PATIENT
  Age: 70 Year
  Sex: Female
  Weight: 94.5 kg

DRUGS (5)
  1. AMLOD/BENAZPRIL [Concomitant]
  2. TYLENOL EXTRA STRENGTH [Concomitant]
     Active Substance: ACETAMINOPHEN
  3. ROSUVASTATIN. [Concomitant]
     Active Substance: ROSUVASTATIN
  4. METFORMIN ER 500MG TAB AMN NDC 65162-178-10 [Suspect]
     Active Substance: METFORMIN HYDROCHLORIDE
     Indication: TYPE 2 DIABETES MELLITUS
     Dosage: ?          QUANTITY:180 TABLET(S);?
     Route: 048
     Dates: start: 20200212, end: 20200621
  5. CARVEDILOL. [Concomitant]
     Active Substance: CARVEDILOL

REACTIONS (2)
  - Recalled product administered [None]
  - Pain [None]

NARRATIVE: CASE EVENT DATE: 20200611
